FAERS Safety Report 21658297 (Version 1)
Quarter: 2022Q4

REPORT INFORMATION
  Report Type: Report from Study
  Country: CZ (occurrence: CZ)
  Receive Date: 20221129
  Receipt Date: 20221129
  Transmission Date: 20230112
  Serious: Yes (Other)
  Sender: FDA-Public Use
  Company Number: CZ-BAYER-2022P022397

PATIENT
  Age: 48 Year
  Sex: Female
  Weight: 75 kg

DRUGS (1)
  1. MIRENA [Suspect]
     Active Substance: LEVONORGESTREL
     Indication: Heavy menstrual bleeding
     Dosage: 20?G/DAY
     Route: 015
     Dates: start: 20210916, end: 20220601

REACTIONS (7)
  - Genital haemorrhage [Not Recovered/Not Resolved]
  - Beta haemolytic streptococcal infection [None]
  - Device expulsion [Recovered/Resolved]
  - Vaginal discharge [None]
  - Escherichia vaginitis [None]
  - Vaginitis gardnerella [None]
  - Bacterial vaginosis [None]

NARRATIVE: CASE EVENT DATE: 20211209
